FAERS Safety Report 4744847-0 (Version None)
Quarter: 2005Q3

REPORT INFORMATION
  Report Type: 
  Country: None (occurrence: None)
  Receive Date: 20050815
  Receipt Date: 20050716
  Transmission Date: 20060218
  Serious: Yes (Death)
  Sender: FDA-Public Use
  Company Number: 2005-UK-01206UK

PATIENT
  Sex: Male

DRUGS (12)
  1. SERETIDE [Suspect]
     Dosage: 1UNIT TWICE PER DAY
     Route: 055
  2. FUROSEMIDE [Suspect]
     Dosage: 40MG IN THE MORNING
     Route: 065
  3. COMBIVENT [Suspect]
     Dosage: 2.5ML FOUR TIMES PER DAY
     Route: 055
  4. SPIRIVA [Suspect]
     Dosage: 18MCG PER DAY
     Route: 055
  5. PREDNISOLONE [Suspect]
     Dosage: 5MG SIX TIMES PER DAY
     Route: 065
  6. AMLODIPINE [Suspect]
     Dosage: 5MG TWICE PER DAY
     Route: 065
  7. CIPROFLOXACIN HCL [Suspect]
     Dosage: 250MG TWICE PER DAY
     Route: 065
  8. TRIMETHOPRIM [Suspect]
     Dosage: 200MG TWICE PER DAY
     Route: 065
  9. SODIUM CHLORIDE [Suspect]
     Route: 065
  10. INSTILLAGEL [Suspect]
     Dosage: 11ML PER DAY
     Route: 065
  11. CLOTRIMAZOLE [Suspect]
     Route: 065
  12. DERMALO HYDROBASE [Suspect]
     Route: 061

REACTIONS (4)
  - CARDIAC FAILURE CONGESTIVE [None]
  - CHRONIC OBSTRUCTIVE PULMONARY DISEASE [None]
  - CYSTITIS [None]
  - DIZZINESS [None]
